FAERS Safety Report 6327008-3 (Version None)
Quarter: 2009Q3

REPORT INFORMATION
  Report Type: 
  Country: None (occurrence: None)
  Receive Date: 20090825
  Receipt Date: 20090817
  Transmission Date: 20100115
  Serious: Yes (Hospitalization)
  Sender: FDA-Public Use
  Company Number: US-ASTRAZENECA-2009SE08664

PATIENT
  Age: 69 Year
  Sex: Male
  Weight: 81.1 kg

DRUGS (16)
  1. TOPROL-XL [Suspect]
     Route: 048
  2. SUNITINIB MALATE CODE NOT BROKEN [Suspect]
     Indication: RENAL CELL CARCINOMA
     Route: 048
     Dates: start: 20061213, end: 20070101
  3. CLONIDINE [Suspect]
     Route: 065
  4. COZAAR [Suspect]
     Route: 065
  5. MICARDIS [Suspect]
     Route: 065
  6. LASIX [Suspect]
     Route: 065
  7. TAMSULOSIN HCL [Suspect]
     Route: 065
  8. NEXIUM [Concomitant]
     Route: 065
  9. AMBIEN [Concomitant]
     Route: 065
  10. ETANERCEPT [Concomitant]
     Route: 065
  11. GLIPIZIDE [Concomitant]
     Route: 065
  12. HYDROCODONE [Concomitant]
     Route: 065
  13. LEXAPRO [Concomitant]
     Route: 065
  14. LIPITOR [Concomitant]
     Route: 065
  15. METFORMIN HCL [Concomitant]
     Route: 065
  16. PREDNISONE TAB [Concomitant]
     Route: 065

REACTIONS (5)
  - FATIGUE [None]
  - HEADACHE [None]
  - HYPERTENSION [None]
  - HYPOTENSION [None]
  - MUCOSAL INFLAMMATION [None]
